FAERS Safety Report 6356414-6 (Version None)
Quarter: 2009Q3

REPORT INFORMATION
  Report Type: 
  Country: None (occurrence: None)
  Receive Date: 20090915
  Receipt Date: 20090908
  Transmission Date: 20100115
  Serious: Yes (Other)
  Sender: FDA-Public Use
  Company Number: AR-ELI_LILLY_AND_COMPANY-AR200909002182

PATIENT
  Age: 19 Year
  Sex: Female

DRUGS (1)
  1. BYETTA [Suspect]
     Dosage: 10 UG, UNKNOWN
     Route: 065

REACTIONS (3)
  - BLOOD GLUCOSE DECREASED [None]
  - PULMONARY HYPERTENSION [None]
  - RESPIRATORY DISORDER [None]
